FAERS Safety Report 25461995 (Version 3)
Quarter: 2025Q3

REPORT INFORMATION
  Report Type: Report from Study
  Country: EU (occurrence: EU)
  Receive Date: 20250620
  Receipt Date: 20250822
  Transmission Date: 20251021
  Serious: No
  Sender: VERITY PHARMACEUTICALS INC.
  Company Number: EU-VER-202500055

PATIENT
  Age: 90 Year
  Sex: Male

DRUGS (7)
  1. TRIPTORELIN PAMOATE [Suspect]
     Active Substance: TRIPTORELIN PAMOATE
     Indication: Prostate cancer
     Dosage: BATCH NO: 007634?EXPIRATION DATE:MAY-2026
     Route: 030
     Dates: start: 20241202, end: 20241202
  2. TRIPTORELIN PAMOATE [Suspect]
     Active Substance: TRIPTORELIN PAMOATE
     Indication: Prostate cancer
     Dosage: BATCH NO: 015628?EXPIRATION DATE:OCT-2027
     Route: 030
     Dates: start: 20250602, end: 20250602
  3. TRIPTORELIN PAMOATE [Suspect]
     Active Substance: TRIPTORELIN PAMOATE
     Indication: Prostate cancer
     Dosage: BATCH NO: T09542?EXPIRATION DATE:SEP-2022
     Route: 030
     Dates: start: 20201215, end: 20201215
  4. CALCIUM [Concomitant]
     Active Substance: CALCIUM
     Route: 065
  5. POLYETHYLENE GLYCOLS [Concomitant]
     Active Substance: POLYETHYLENE GLYCOLS
     Route: 065
  6. PANTOPRAZOLE [Concomitant]
     Active Substance: PANTOPRAZOLE
     Route: 065
  7. ASPIRIN [Concomitant]
     Active Substance: ASPIRIN
     Route: 065

REACTIONS (2)
  - Fall [Recovered/Resolved]
  - Wrist fracture [Recovered/Resolved]

NARRATIVE: CASE EVENT DATE: 20250404
